FAERS Safety Report 8395620-6 (Version None)
Quarter: 2012Q2

REPORT INFORMATION
  Report Type: 
  Country: None (occurrence: None)
  Receive Date: 20120530
  Receipt Date: 20111129
  Transmission Date: 20120825
  Serious: No
  Sender: FDA-Public Use
  Company Number: US-GLAXOSMITHKLINE-A0955773A

PATIENT
  Age: 66 Year
  Sex: Female

DRUGS (8)
  1. OXYGEN [Concomitant]
  2. VENTOLIN [Suspect]
     Indication: ASTHMA
     Dosage: 2PUFF FOUR TIMES PER DAY
     Route: 055
     Dates: start: 19990101
  3. THEOPHYLLINE [Concomitant]
  4. XANAX [Concomitant]
  5. GABAPENTIN [Concomitant]
  6. WARFARIN SODIUM [Concomitant]
  7. NEXIUM [Concomitant]
  8. ADVAIR DISKUS 100/50 [Concomitant]

REACTIONS (2)
  - STOMATITIS [None]
  - PRODUCT QUALITY ISSUE [None]
